FAERS Safety Report 7984370-3 (Version None)
Quarter: 2011Q4

REPORT INFORMATION
  Report Type: 
  Country: None (occurrence: None)
  Receive Date: 20111216
  Receipt Date: 20111201
  Transmission Date: 20120403
  Serious: Yes (Other)
  Sender: FDA-Public Use
  Company Number: CA-UCBSA-047053

PATIENT
  Age: 49 Year
  Sex: Female
  Weight: 71.7 kg

DRUGS (7)
  1. CIMZIA [Suspect]
     Indication: RHEUMATOID ARTHRITIS
     Route: 058
     Dates: start: 20110715
  2. CIMZIA [Suspect]
     Route: 058
     Dates: start: 20101201, end: 20110711
  3. CYMBALTA [Concomitant]
     Indication: DEPRESSION
     Route: 048
  4. VENTOLIN DS [Concomitant]
     Indication: ASTHMA
     Dosage: 2 PUFFS PER DOSE BY INH
     Route: 055
  5. PREDNISONE [Concomitant]
     Indication: RHEUMATOID ARTHRITIS
     Route: 048
  6. METHOTREXATE [Concomitant]
     Indication: RHEUMATOID ARTHRITIS
     Route: 058
  7. CELEBREX [Concomitant]
     Indication: RHEUMATOID ARTHRITIS
     Route: 048

REACTIONS (2)
  - LOWER RESPIRATORY TRACT INFECTION [None]
  - CARPAL TUNNEL SYNDROME [None]
